FAERS Safety Report 6056217-6 (Version None)
Quarter: 2009Q1

REPORT INFORMATION
  Report Type: 
  Country: None (occurrence: None)
  Receive Date: 20090129
  Receipt Date: 20090123
  Transmission Date: 20090719
  Serious: Yes (Other)
  Sender: FDA-Public Use
  Company Number: BR-ASTRAZENECA-2009UW02372

PATIENT
  Age: 36 Year
  Sex: Female
  Weight: 74 kg

DRUGS (4)
  1. ZOLADEX [Suspect]
     Indication: ENDOMETRIOSIS
     Dosage: QUARTERLY
     Route: 058
     Dates: start: 20080401, end: 20080701
  2. RIVOTRIL [Concomitant]
     Indication: DEPRESSION
  3. VALPROIC ACID [Concomitant]
     Indication: DEPRESSION
  4. FLUOXETINE [Concomitant]
     Indication: DEPRESSION

REACTIONS (7)
  - AMENORRHOEA [None]
  - BREAST DISCHARGE [None]
  - BREAST MASS [None]
  - DEPRESSION [None]
  - HAEMORRHOIDS [None]
  - SWELLING [None]
  - WEIGHT INCREASED [None]
